FAERS Safety Report 7302333-8 (Version None)
Quarter: 2011Q1

REPORT INFORMATION
  Report Type: 
  Country: None (occurrence: None)
  Receive Date: 20110218
  Receipt Date: 20110207
  Transmission Date: 20110831
  Serious: Yes (Death)
  Sender: FDA-Public Use
  Company Number: JP-CELGENEUS-087-21880-11020774

PATIENT
  Sex: Male

DRUGS (4)
  1. REVLIMID [Suspect]
     Route: 048
     Dates: start: 20110114, end: 20110127
  2. LENADEX [Suspect]
     Indication: MULTIPLE MYELOMA
     Route: 048
     Dates: start: 20101217, end: 20101220
  3. LENADEX [Suspect]
     Route: 048
     Dates: start: 20110114, end: 20110117
  4. REVLIMID [Suspect]
     Indication: MULTIPLE MYELOMA
     Route: 048
     Dates: start: 20101217, end: 20110106

REACTIONS (1)
  - INTERSTITIAL LUNG DISEASE [None]
